FAERS Safety Report 9316709 (Version 1)
Quarter: 2013Q2

REPORT INFORMATION
  Report Type: Spontaneous
  Country: US (occurrence: None)
  Receive Date: 20130524
  Receipt Date: 20130524
  Transmission Date: 20140414
  Serious: Yes (Hospitalization)
  Sender: FDA-Public Use
  Company Number: CC1304004

PATIENT
  Age: 11 Year
  Sex: Female

DRUGS (2)
  1. NIGHTIME COLD [Suspect]
     Indication: PAIN
     Route: 048
     Dates: start: 20130315
  2. NIGHTIME COLD [Suspect]
     Indication: COUGH
     Route: 048
     Dates: start: 20130315

REACTIONS (1)
  - Malaise [None]
